FAERS Safety Report 8213783-X (Version None)
Quarter: 2012Q1

REPORT INFORMATION
  Report Type: 
  Country: None (occurrence: None)
  Receive Date: 20120316
  Receipt Date: 20120307
  Transmission Date: 20120608
  Serious: Yes (Hospitalization)
  Sender: FDA-Public Use
  Company Number: AR-AMGEN-ARGSP2012002769

PATIENT
  Age: 49 Year
  Sex: Male

DRUGS (3)
  1. ENBREL [Suspect]
     Indication: PSORIATIC ARTHROPATHY
     Dosage: 25 MG, 2X/WEEK
     Route: 058
     Dates: start: 20100101, end: 20111201
  2. OMEPRAZOLE [Concomitant]
     Dosage: UNK
     Route: 048
  3. METHOTREXATE [Concomitant]
     Dosage: UNK
     Route: 048

REACTIONS (5)
  - BLOOD PRESSURE ABNORMAL [None]
  - PSORIASIS [None]
  - ENDOCRINE DISORDER [None]
  - WEIGHT INCREASED [None]
  - CARDIAC DISORDER [None]
